FAERS Safety Report 4789880-8 (Version None)
Quarter: 2005Q3

REPORT INFORMATION
  Report Type: 
  Country: None (occurrence: None)
  Receive Date: 20050914
  Receipt Date: 20041220
  Transmission Date: 20060218
  Serious: Yes (Hospitalization)
  Sender: FDA-Public Use
  Company Number: 163-20785-04120533

PATIENT
  Age: 79 Year
  Sex: Male
  Weight: 72.1219 kg

DRUGS (7)
  1. THALOMID [Suspect]
     Indication: WALDENSTROM'S MACROGLOBULINAEMIA
     Dosage: SEE IMAGE
     Route: 048
     Dates: start: 20020211, end: 20040601
  2. THALOMID [Suspect]
     Indication: WALDENSTROM'S MACROGLOBULINAEMIA
     Dosage: SEE IMAGE
     Route: 048
     Dates: start: 20040801
  3. PLAVIX [Concomitant]
  4. ZOCOR [Concomitant]
  5. DECADRON [Concomitant]
  6. AMOXICILLIN [Concomitant]
  7. SALINE RINSE (SODIUM CHLORIDE) [Concomitant]

REACTIONS (5)
  - AORTIC VALVE REPLACEMENT [None]
  - MYOCARDIAL INFARCTION [None]
  - OEDEMA PERIPHERAL [None]
  - PAPILLARY MUSCLE RUPTURE [None]
  - WEIGHT DECREASED [None]
